FAERS Safety Report 10985842 (Version 1)
Quarter: 2015Q2

REPORT INFORMATION
  Report Type: Spontaneous
  Country: US (occurrence: US)
  Receive Date: 20150404
  Receipt Date: 20150404
  Transmission Date: 20150821
  Serious: No
  Sender: FDA-Public Use
  Company Number: US-SA-2014SA106000

PATIENT
  Age: 83 Year
  Sex: Male

DRUGS (2)
  1. ALLEGRA-D [Suspect]
     Active Substance: FEXOFENADINE\PSEUDOEPHEDRINE
     Indication: HYPERSENSITIVITY
     Dosage: DOSE:60/120 MG
     Route: 048
     Dates: start: 20140730
  2. LORATADINE. [Concomitant]
     Active Substance: LORATADINE

REACTIONS (2)
  - Dyspnoea [Unknown]
  - Abdominal discomfort [Unknown]
